FAERS Safety Report 18243578 (Version 2)
Quarter: 2020Q3

REPORT INFORMATION
  Report Type: Spontaneous
  Country: CN (occurrence: CN)
  Receive Date: 20200908
  Receipt Date: 20200911
  Transmission Date: 20201103
  Serious: Yes (Other)
  Sender: FDA-Public Use
  Company Number: CN-CELGENEUS-CHN-20200901026

PATIENT
  Age: 62 Year
  Sex: Female

DRUGS (3)
  1. SODIUM CHLORIDE. [Concomitant]
     Active Substance: SODIUM CHLORIDE
     Indication: BREAST CANCER FEMALE
     Dosage: 80 MILLILITER
     Route: 041
     Dates: start: 20200818, end: 20200818
  2. CAPECITABINE. [Suspect]
     Active Substance: CAPECITABINE
     Indication: BREAST CANCER FEMALE
     Dosage: 3 GRAM
     Route: 048
     Dates: start: 20200818, end: 20200831
  3. ABRAXANE [Suspect]
     Active Substance: PACLITAXEL
     Indication: BREAST CANCER FEMALE
     Dosage: 400 MILLIGRAM
     Route: 041
     Dates: start: 20200818, end: 20200818

REACTIONS (1)
  - Myelosuppression [Unknown]

NARRATIVE: CASE EVENT DATE: 20200824
